FAERS Safety Report 5194208-8 (Version None)
Quarter: 2006Q4

REPORT INFORMATION
  Report Type: 
  Country: None (occurrence: None)
  Receive Date: 20061228
  Receipt Date: 20061218
  Transmission Date: 20070319
  Serious: Yes (Hospitalization, Other)
  Sender: FDA-Public Use
  Company Number: US-BRISTOL-MYERS SQUIBB COMPANY-13616446

PATIENT
  Sex: Male
  Weight: 74 kg

DRUGS (3)
  1. CETUXIMAB [Suspect]
     Indication: SQUAMOUS CELL CARCINOMA
     Route: 042
     Dates: start: 20061113, end: 20061113
  2. CISPLATIN [Suspect]
     Indication: SQUAMOUS CELL CARCINOMA
     Route: 042
     Dates: start: 20061113, end: 20061113
  3. RADIATION THERAPY [Suspect]
     Indication: SQUAMOUS CELL CARCINOMA
     Dates: start: 20061120, end: 20061120

REACTIONS (5)
  - ANOREXIA [None]
  - DEHYDRATION [None]
  - EXFOLIATIVE RASH [None]
  - PHARYNGEAL ERYTHEMA [None]
  - STOMATITIS [None]
